FAERS Safety Report 23243246 (Version 2)
Quarter: 2023Q4

REPORT INFORMATION
  Report Type: Report from Study
  Country: US (occurrence: US)
  Receive Date: 20231130
  Receipt Date: 20231215
  Transmission Date: 20240110
  Serious: Yes (Other)
  Sender: FDA-Public Use
  Company Number: US-ALXN-A202310243AA

PATIENT
  Sex: Female

DRUGS (2)
  1. SOLIRIS [Suspect]
     Active Substance: ECULIZUMAB
     Indication: Neuromyelitis optica spectrum disorder
     Dosage: UNK
     Route: 065
     Dates: start: 20230803
  2. MENINGOCOCCAL POLYSACCHARIDE VACCINE A NOS [Suspect]
     Active Substance: MENINGOCOCCAL POLYSACCHARIDE VACCINE A\NEISSERIA MENINGITIDIS GROUP A CAPSULAR POLYSACCHARIDE ANTIGE
     Indication: Meningococcal immunisation
     Dosage: UNK
     Route: 065
     Dates: start: 20230803

REACTIONS (24)
  - Paraplegia [Recovering/Resolving]
  - Flushing [Recovering/Resolving]
  - Blood pressure increased [Recovering/Resolving]
  - Sensitive skin [Unknown]
  - Limb discomfort [Unknown]
  - Muscular weakness [Unknown]
  - Gait disturbance [Unknown]
  - Inflammation [Unknown]
  - Gastric infection [Unknown]
  - Feeling abnormal [Unknown]
  - Motor dysfunction [Not Recovered/Not Resolved]
  - Bradykinesia [Unknown]
  - Pain [Unknown]
  - Muscle spasms [Unknown]
  - Pyrexia [Unknown]
  - Nausea [Unknown]
  - Headache [Unknown]
  - Fatigue [Unknown]
  - Vein disorder [Unknown]
  - Cough [Unknown]
  - Musculoskeletal stiffness [Unknown]
  - Rhinorrhoea [Unknown]
  - Erythema [Unknown]
  - Constipation [Unknown]

NARRATIVE: CASE EVENT DATE: 20230803
